FAERS Safety Report 9856785 (Version 5)
Quarter: 2014Q2

REPORT INFORMATION
  Report Type: Spontaneous
  Country: GB (occurrence: GB)
  Receive Date: 20140130
  Receipt Date: 20140505
  Transmission Date: 20141212
  Serious: Yes (Disabling, Other)
  Sender: FDA-Public Use
  Company Number: GB-ABBVIE-14P-167-1193579-00

PATIENT
  Age: 59 Year
  Sex: Male

DRUGS (3)
  1. HUMIRA [Suspect]
     Indication: PSORIASIS
     Route: 030
     Dates: start: 20100201, end: 20130115
  2. ASPIRIN [Concomitant]
     Indication: BLOOD PRESSURE INCREASED
     Dates: start: 20000501
  3. LOSARTAN [Concomitant]
     Indication: BLOOD PRESSURE INCREASED
     Dates: start: 20090501

REACTIONS (4)
  - Malaise [Recovered/Resolved]
  - Lower respiratory tract infection [Recovered/Resolved]
  - Mycobacterium tuberculosis complex test positive [Recovered/Resolved]
  - Latent tuberculosis [Recovered/Resolved]
